FAERS Safety Report 6694215-X (Version None)
Quarter: 2010Q2

REPORT INFORMATION
  Report Type: 
  Country: None (occurrence: None)
  Receive Date: 20100423
  Receipt Date: 20100413
  Transmission Date: 20101027
  Serious: Yes (Hospitalization)
  Sender: FDA-Public Use
  Company Number: US-JNJFOC-20100404025

PATIENT
  Sex: Male
  Weight: 37.6 kg

DRUGS (6)
  1. REMICADE [Suspect]
     Indication: CROHN'S DISEASE
     Route: 042
  2. REMICADE [Suspect]
     Route: 042
  3. 5-ASA [Concomitant]
  4. PREDNISONE TAB [Concomitant]
  5. METRONIDAZOLE [Concomitant]
  6. DRUGS FOR ACID RELATED DISORDERS [Concomitant]

REACTIONS (1)
  - CROHN'S DISEASE [None]
